FAERS Safety Report 7559663-4 (Version None)
Quarter: 2011Q2

REPORT INFORMATION
  Report Type: 
  Country: None (occurrence: None)
  Receive Date: 20110621
  Receipt Date: 20110608
  Transmission Date: 20111010
  Serious: Yes (Other)
  Sender: FDA-Public Use
  Company Number: US-CELGENEUS-163-21880-11061449

PATIENT
  Sex: Male

DRUGS (9)
  1. DIOVAN [Concomitant]
     Route: 065
  2. MAGNESIUM OXIDE [Concomitant]
     Route: 065
  3. COREG CR [Concomitant]
     Route: 065
  4. WARFARIN SODIUM [Concomitant]
     Route: 065
  5. DIGOXIN [Concomitant]
     Route: 065
  6. PROBIOTIC [Concomitant]
     Route: 065
  7. REVLIMID [Suspect]
     Dosage: 10 MILLIGRAM
     Route: 048
     Dates: start: 20110524
  8. ALLOPURINOL [Concomitant]
     Route: 065
  9. UROXATRAL [Concomitant]
     Route: 065

REACTIONS (3)
  - OEDEMA PERIPHERAL [None]
  - PROSTATITIS [None]
  - ANAEMIA [None]
